FAERS Safety Report 5731769-1 (Version None)
Quarter: 2008Q2

REPORT INFORMATION
  Report Type: 
  Country: None (occurrence: None)
  Receive Date: 20080508
  Receipt Date: 20080501
  Transmission Date: 20081010
  Serious: Yes (Hospitalization)
  Sender: FDA-Public Use
  Company Number: GB-ROCHE-557333

PATIENT
  Sex: Female

DRUGS (11)
  1. BONIVA [Suspect]
     Indication: OSTEOPOROSIS
     Route: 042
     Dates: start: 20080123
  2. AMLODIPINE [Concomitant]
  3. LISINOPRIL [Concomitant]
  4. BISOPROLOL FUMARATE [Concomitant]
  5. SIMVASTATIN [Concomitant]
  6. OXYCODONE HCL [Concomitant]
     Indication: BACK PAIN
     Dosage: QDS
     Route: 048
     Dates: start: 20050311
  7. LANSOPROL [Concomitant]
     Indication: DYSPEPSIA
     Route: 048
  8. LANSOPROL [Concomitant]
     Route: 048
     Dates: start: 20041213
  9. CALCICHEW [Concomitant]
  10. ASPIRIN [Concomitant]
  11. NAPROXEN [Concomitant]
     Indication: BACK PAIN
     Route: 048
     Dates: start: 20041108

REACTIONS (1)
  - ATRIAL FIBRILLATION [None]
